FAERS Safety Report 7652756-2 (Version None)
Quarter: 2011Q3

REPORT INFORMATION
  Report Type: 
  Country: None (occurrence: None)
  Receive Date: 20110803
  Receipt Date: 20110720
  Transmission Date: 20111222
  Serious: Yes (Hospitalization, Disabling, Other)
  Sender: FDA-Public Use
  Company Number: GB-RANBAXY-2011R1-45467

PATIENT
  Age: 70 Year
  Sex: Female

DRUGS (2)
  1. CEFUROXIME SODIUM [Concomitant]
     Indication: ANTIBIOTIC PROPHYLAXIS
     Dosage: UNK
     Route: 057
  2. CEFUROXIME [Suspect]
     Indication: PRODUCT USED FOR UNKNOWN INDICATION
     Dosage: 62.5 MG, 1/1 TOTAL
     Route: 031

REACTIONS (14)
  - RETINAL INFARCTION [None]
  - RETINAL OEDEMA [None]
  - RETINAL HAEMORRHAGE [None]
  - VISUAL ACUITY REDUCED [None]
  - OFF LABEL USE [None]
  - RETINAL VASCULAR DISORDER [None]
  - INTRAOCULAR PRESSURE INCREASED [None]
  - WRONG DRUG ADMINISTERED [None]
  - INCORRECT ROUTE OF DRUG ADMINISTRATION [None]
  - CIRCUMSTANCE OR INFORMATION CAPABLE OF LEADING TO MEDICATION ERROR [None]
  - CYSTOID MACULAR OEDEMA [None]
  - MACULAR ISCHAEMIA [None]
  - INCORRECT DOSE ADMINISTERED [None]
  - MACULAR SCAR [None]
